FAERS Safety Report 20390986 (Version 1)
Quarter: 2022Q1

REPORT INFORMATION
  Report Type: Spontaneous
  Country: None (occurrence: ES)
  Receive Date: 20220128
  Receipt Date: 20220128
  Transmission Date: 20220424
  Serious: No
  Sender: FDA-Public Use
  Company Number: ES-SERB S.A.S.-2124396

PATIENT
  Age: 53 Year
  Sex: Male

DRUGS (1)
  1. CYANOKIT [Suspect]
     Active Substance: HYDROXOCOBALAMIN
     Indication: Accidental poisoning
     Route: 065

REACTIONS (4)
  - Chromaturia [Recovered/Resolved]
  - Crystal urine present [Recovered/Resolved]
  - Laboratory test interference [Recovered/Resolved]
  - Product use in unapproved indication [Recovered/Resolved]
